FAERS Safety Report 23636126 (Version 1)
Quarter: 2024Q1

REPORT INFORMATION
  Report Type: Spontaneous
  Country: CN (occurrence: CN)
  Receive Date: 20240315
  Receipt Date: 20240315
  Transmission Date: 20240409
  Serious: Yes (Hospitalization)
  Sender: FDA-Public Use
  Company Number: CN-TASMAN PHARMA, INC.-2024TSM00164

PATIENT
  Age: 71 Year
  Sex: Female

DRUGS (2)
  1. CLOZAPINE [Suspect]
     Active Substance: CLOZAPINE
     Dosage: INITIAL DOSING UNKNOWN
  2. CLOZAPINE [Suspect]
     Active Substance: CLOZAPINE
     Dosage: 10000 MG, ONCE
     Route: 048

REACTIONS (8)
  - Intentional overdose [Recovered/Resolved]
  - Toxicity to various agents [Recovered/Resolved]
  - Depressed level of consciousness [Recovered/Resolved]
  - Hypotension [Recovered/Resolved]
  - Tremor [Recovered/Resolved]
  - Heart rate increased [Recovered/Resolved]
  - Pyrexia [Recovered/Resolved]
  - Hypoxia [Recovered/Resolved]
